FAERS Safety Report 24652957 (Version 2)
Quarter: 2024Q4

REPORT INFORMATION
  Report Type: Spontaneous
  Country: US (occurrence: US)
  Receive Date: 20241122
  Receipt Date: 20241213
  Transmission Date: 20250114
  Serious: No
  Sender: BAYER HEALTHCARE LLC
  Company Number: US-BAYER-2024A166570

PATIENT
  Age: 42 Year
  Sex: Female

DRUGS (1)
  1. CLARITIN ALLERGY [Suspect]
     Active Substance: LORATADINE

REACTIONS (1)
  - Product prescribing issue [Unknown]
